FAERS Safety Report 24278127 (Version 2)
Quarter: 2024Q3

REPORT INFORMATION
  Report Type: Report from Study
  Country: US (occurrence: US)
  Receive Date: 20240903
  Receipt Date: 20240909
  Transmission Date: 20241017
  Serious: Yes (Hospitalization)
  Sender: OTSUKA
  Company Number: US-OTSUKA-2024_023471

PATIENT
  Age: 54 Year
  Sex: Male
  Weight: 113.4 kg

DRUGS (2)
  1. TOLVAPTAN [Suspect]
     Active Substance: TOLVAPTAN
     Indication: Hypervolaemia
     Dosage: 60 MG, QD (UPON WAKING)
     Route: 065
  2. TOLVAPTAN [Suspect]
     Active Substance: TOLVAPTAN
     Indication: Congenital cystic kidney disease
     Dosage: 30 MG, QD (8 H LATER)
     Route: 065

REACTIONS (2)
  - Cerebrovascular accident [Not Recovered/Not Resolved]
  - Off label use [Not Recovered/Not Resolved]

NARRATIVE: CASE EVENT DATE: 20240824
